FAERS Safety Report 25498166 (Version 1)
Quarter: 2025Q3

REPORT INFORMATION
  Report Type: Spontaneous
  Country: EU (occurrence: EU)
  Receive Date: 20250701
  Receipt Date: 20250701
  Transmission Date: 20251020
  Serious: Yes (Hospitalization)
  Sender: ACCORD
  Company Number: None

PATIENT
  Age: 66 Year
  Sex: Female

DRUGS (10)
  1. QUETIAPINE [Suspect]
     Active Substance: QUETIAPINE
     Indication: Product used for unknown indication
     Dosage: B.A.W
     Dates: start: 20231227
  2. OLANZAPINE [Suspect]
     Active Substance: OLANZAPINE
     Indication: Product used for unknown indication
     Dosage: B.A.W.
     Dates: start: 20240210
  3. FLUOXETINE [Concomitant]
     Active Substance: FLUOXETINE HYDROCHLORIDE
     Dosage: B.A.W.
     Dates: start: 20240104, end: 20240110
  4. AMLODIPINE [Concomitant]
     Active Substance: AMLODIPINE BESYLATE
     Dosage: FOR A LONG TIME B.A.W.
  5. QUETIAPINE [Suspect]
     Active Substance: QUETIAPINE
     Indication: Product used for unknown indication
     Dosage: FOR A LONG TIME
     Dates: end: 20231221
  6. QUETIAPINE [Suspect]
     Active Substance: QUETIAPINE
     Indication: Product used for unknown indication
     Dates: start: 20231222, end: 20231226
  7. OLANZAPINE [Suspect]
     Active Substance: OLANZAPINE
     Indication: Product used for unknown indication
     Dosage: B.A.W.
     Dates: start: 20240124, end: 20240209
  8. OLANZAPINE [Suspect]
     Active Substance: OLANZAPINE
     Indication: Product used for unknown indication
     Dates: start: 20231227, end: 20240123
  9. OLANZAPINE [Suspect]
     Active Substance: OLANZAPINE
     Indication: Product used for unknown indication
     Dates: start: 20231223, end: 20231226
  10. OLANZAPINE [Suspect]
     Active Substance: OLANZAPINE
     Indication: Product used for unknown indication
     Dosage: FOR A LONG TIME
     Dates: start: 20231222

REACTIONS (1)
  - Periorbital oedema [Recovered/Resolved]

NARRATIVE: CASE EVENT DATE: 20240205
